FAERS Safety Report 21858972 (Version 4)
Quarter: 2024Q3

REPORT INFORMATION
  Report Type: Report from Study
  Country: EG (occurrence: EG)
  Receive Date: 20230113
  Receipt Date: 20240712
  Transmission Date: 20241017
  Serious: Yes (Other)
  Sender: NOVARTIS
  Company Number: EG-002147023-NVSC2023EG006453

PATIENT
  Age: 65 Year
  Sex: Female

DRUGS (15)
  1. KISQALI [Suspect]
     Active Substance: RIBOCICLIB
     Indication: Breast cancer metastatic
     Dosage: 3 DOSAGE FORM, QD (3 TABLETS ONCE DAILY FOR 21 DAYS AND 1 WEEK OFF)
     Route: 048
     Dates: start: 202211, end: 202212
  2. KISQALI [Suspect]
     Active Substance: RIBOCICLIB
     Dosage: 3 DOSAGE FORM, QD, (FOR 21 DAYS AND 1 WEEK OFF)
     Route: 048
     Dates: start: 20221201
  3. KISQALI [Suspect]
     Active Substance: RIBOCICLIB
     Dosage: 200 MG
     Route: 048
     Dates: end: 202302
  4. FEMARA [Suspect]
     Active Substance: LETROZOLE
     Indication: Breast cancer metastatic
     Dosage: 2.5 MG
     Route: 048
  5. ASPIRIN [Concomitant]
     Active Substance: ASPIRIN
     Indication: Prophylaxis
     Dosage: 1 DOSAGE FORM, QD, (6 OR 7 MONTHS AGO)
     Route: 065
  6. OSTEOCARE [Concomitant]
     Active Substance: CALCIUM\CHOLECALCIFEROL\MAGNESIUM\ZINC
     Indication: Mineral supplementation
     Dosage: 1 DOSAGE FORM, QD, (AFTER BREAKFAST, SINCE 6 YEARS AGO)
     Route: 065
  7. OSTEOCARE [Concomitant]
     Active Substance: CALCIUM\CHOLECALCIFEROL\MAGNESIUM\ZINC
     Indication: Vitamin supplementation
  8. AROMASIN [Concomitant]
     Active Substance: EXEMESTANE
     Indication: Breast cancer metastatic
     Dosage: 1 DOSAGE FORM, QD, (2 YEARS OR MORE)
     Route: 065
  9. AROMASIN [Concomitant]
     Active Substance: EXEMESTANE
     Indication: Neoplasm malignant
     Dosage: 1 DOSAGE FORM (AFTER LUNCH)
     Route: 065
     Dates: start: 202211
  10. URIPAN [Concomitant]
     Indication: Enuresis
     Dosage: 1 DOSAGE FORM, QD, (YEAR OR MORE)
     Route: 065
  11. URIPAN [Concomitant]
     Indication: Bladder disorder
     Dosage: 1 DOSAGE FORM (AFTER DINNER, START DATE: 3 TO 4 YEARS AGO)
     Route: 065
  12. OCUGUARD [Concomitant]
     Active Substance: OCUGUARD
     Indication: Supplementation therapy
     Dosage: 1 DOSAGE FORM, QD, (MORE THAN ONE YEAR)
     Route: 065
  13. OCUGUARD [Concomitant]
     Active Substance: OCUGUARD
     Indication: Retinal disorder
     Dosage: 1 DOSAGE FORM (AFTER DINNER, START DATE: 3 TO 4 YEARS A GO)
     Route: 065
  14. IBRANCE [Concomitant]
     Active Substance: PALBOCICLIB
     Indication: Neoplasm malignant
     Dosage: 1 DOSAGE FORM (1 TABLET AFTER DINNER)
     Route: 065
     Dates: start: 202301
  15. CALCIUM [Concomitant]
     Active Substance: CALCIUM
     Indication: Bone disorder
     Dosage: 1 DOSAGE FORM (AFTER BREAKFAST)
     Route: 065

REACTIONS (12)
  - Decreased immune responsiveness [Unknown]
  - Blood disorder [Unknown]
  - Tachycardia [Recovered/Resolved]
  - Abdominal pain upper [Recovered/Resolved]
  - Body temperature increased [Recovered/Resolved]
  - Rash [Recovered/Resolved]
  - Gastritis [Not Recovered/Not Resolved]
  - Vomiting [Not Recovered/Not Resolved]
  - Decreased appetite [Not Recovered/Not Resolved]
  - Dysgeusia [Not Recovered/Not Resolved]
  - Pruritus [Not Recovered/Not Resolved]
  - Rash [Unknown]

NARRATIVE: CASE EVENT DATE: 20221201
